FAERS Safety Report 11887057 (Version 1)
Quarter: 2016Q1

REPORT INFORMATION
  Report Type: Spontaneous
  Country: US (occurrence: US)
  Receive Date: 20160104
  Receipt Date: 20160104
  Transmission Date: 20160526
  Serious: No
  Sender: FDA-Public Use
  Company Number: US-ASTRAZENECA-2015SF28861

PATIENT
  Age: 13281 Day
  Sex: Female
  Weight: 124.7 kg

DRUGS (5)
  1. HUMALOG [Concomitant]
     Active Substance: INSULIN LISPRO
     Indication: DIABETES MELLITUS
     Dosage: 75/25 IU; TWO TIMES A DAY
     Route: 058
  2. METFORMIN [Concomitant]
     Active Substance: METFORMIN HYDROCHLORIDE
     Indication: DIABETES MELLITUS
  3. BYETTA [Suspect]
     Active Substance: EXENATIDE
     Indication: RENAL TUBULAR ACIDOSIS
     Route: 058
  4. VICTOZA [Concomitant]
     Active Substance: LIRAGLUTIDE
     Indication: DIABETES MELLITUS
  5. BYDUREON [Suspect]
     Active Substance: EXENATIDE
     Indication: TYPE 2 DIABETES MELLITUS
     Route: 058
     Dates: start: 20151213

REACTIONS (7)
  - Injection site urticaria [Unknown]
  - Pruritus generalised [Unknown]
  - Drug hypersensitivity [Unknown]
  - Tremor [Unknown]
  - Hyperhidrosis [Unknown]
  - Blood glucose decreased [Unknown]
  - Urticaria [Unknown]

NARRATIVE: CASE EVENT DATE: 20151216
